FAERS Safety Report 8968682 (Version 1)
Quarter: 2012Q4

REPORT INFORMATION
  Report Type: Spontaneous
  Country: CN (occurrence: None)
  Receive Date: 20121207
  Receipt Date: 20121207
  Transmission Date: 20130627
  Serious: No
  Sender: FDA-Public Use
  Company Number: VAL_01156_2012

PATIENT
  Age: 52 Year
  Sex: Female

DRUGS (4)
  1. LOTENSIN [Suspect]
     Indication: HYPERTENSION
     Route: 048
     Dates: start: 20100501, end: 20100520
  2. NORVASC [Suspect]
     Dosage: (DF)
  3. PLENDIL [Concomitant]
  4. MONOPRIL [Concomitant]

REACTIONS (4)
  - Face oedema [None]
  - Rash [None]
  - Oedema mouth [None]
  - Nasal oedema [None]
